FAERS Safety Report 16142324 (Version 2)
Quarter: 2019Q2

REPORT INFORMATION
  Report Type: Spontaneous
  Country: US (occurrence: US)
  Receive Date: 20190401
  Receipt Date: 20190415
  Transmission Date: 20190711
  Serious: No
  Sender: FDA-Public Use
  Company Number: US-SA-2019SA088241

PATIENT
  Age: 49 Year
  Sex: Female
  Weight: 113.39 kg

DRUGS (1)
  1. LANTUS SOLOSTAR [Suspect]
     Active Substance: INSULIN GLARGINE
     Indication: TYPE 2 DIABETES MELLITUS
     Dosage: 65 IU, BID,TWICE DAILY
     Route: 065

REACTIONS (1)
  - Inappropriate schedule of product administration [Unknown]
